FAERS Safety Report 6662508-8 (Version None)
Quarter: 2010Q1

REPORT INFORMATION
  Report Type: 
  Country: None (occurrence: None)
  Receive Date: 20100329
  Receipt Date: 20100324
  Transmission Date: 20100710
  Serious: Yes (Death)
  Sender: FDA-Public Use
  Company Number: 2010SP018224

PATIENT
  Age: 59 Year
  Sex: Male

DRUGS (5)
  1. PEG-INTRON [Suspect]
     Indication: HEPATITIS C
     Dosage: 80 MCG; QD
     Dates: start: 20090519
  2. AMLODIPINE [Concomitant]
  3. CALCITRIOL [Concomitant]
  4. CALTRATE [Concomitant]
  5. FOLIC ACID [Concomitant]

REACTIONS (2)
  - CARDIO-RESPIRATORY ARREST [None]
  - PROCEDURAL COMPLICATION [None]
